APPROVED DRUG PRODUCT: FLUDEOXYGLUCOSE F18
Active Ingredient: FLUDEOXYGLUCOSE F-18
Strength: 20-300mCi/ML
Dosage Form/Route: INJECTABLE;INTRAVENOUS
Application: A208679 | Product #001
Applicant: MEMORIAL SLOAN-KETTERING CANCER CENTER
Approved: Dec 8, 2016 | RLD: No | RS: No | Type: DISCN